FAERS Safety Report 22256078 (Version 7)
Quarter: 2024Q2

REPORT INFORMATION
  Report Type: Spontaneous
  Country: US (occurrence: US)
  Receive Date: 20230426
  Receipt Date: 20240523
  Transmission Date: 20240717
  Serious: No
  Sender: FDA-Public Use
  Company Number: US-PFIZER INC-PV202300017180

PATIENT
  Age: 73 Year
  Sex: Female

DRUGS (2)
  1. IBRANCE [Suspect]
     Active Substance: PALBOCICLIB
     Dosage: 100 MG, CYCLIC (EVERY DAY (QD) X 21 DAYS)
     Route: 048
  2. IBRANCE [Suspect]
     Active Substance: PALBOCICLIB
     Dosage: 100 MG, DAILY
     Route: 048

REACTIONS (7)
  - Back pain [Unknown]
  - Insomnia [Unknown]
  - Stress [Unknown]
  - Fatigue [Unknown]
  - Somnolence [Unknown]
  - Illness [Unknown]
  - Product dose omission in error [Unknown]
